FAERS Safety Report 8817135 (Version 1)
Quarter: 2012Q4

REPORT INFORMATION
  Report Type: Spontaneous
  Country: US (occurrence: None)
  Receive Date: 20121003
  Receipt Date: 20121003
  Transmission Date: 20130627
  Serious: Yes (Life-Threatening)
  Sender: FDA-Public Use
  Company Number: None

PATIENT
  Age: 65 Year
  Sex: Male
  Weight: 97.52 kg

DRUGS (1)
  1. CARBOPLATIN [Suspect]
     Indication: LUNG CANCER
     Route: 042
     Dates: start: 20120928

REACTIONS (3)
  - Chest pain [None]
  - Erythema [None]
  - Infusion related reaction [None]
